FAERS Safety Report 4376489-3 (Version None)
Quarter: 2004Q2

REPORT INFORMATION
  Report Type: 
  Country: None (occurrence: None)
  Receive Date: 20040610
  Receipt Date: 20040601
  Transmission Date: 20050107
  Serious: Yes (Other)
  Sender: FDA-Public Use
  Company Number: 2004037048

PATIENT
  Age: 27 Year
  Sex: Male
  Weight: 149.687 kg

DRUGS (1)
  1. UNISOM SLEEPGELS (DIPHENHYDRAMINE) [Suspect]
     Indication: INSOMNIA
     Dosage: ONE, TWO, THREE TO FOUR LIQUIDCAPS QD, ORAL)
     Route: 048
     Dates: start: 20030101, end: 20040529

REACTIONS (3)
  - EXCITABILITY [None]
  - HEART RATE INCREASED [None]
  - OVERDOSE [None]
